FAERS Safety Report 21891246 (Version 2)
Quarter: 2023Q1

REPORT INFORMATION
  Report Type: Spontaneous
  Country: CN (occurrence: CN)
  Receive Date: 20230120
  Receipt Date: 20230224
  Transmission Date: 20230417
  Serious: Yes (Hospitalization, Other)
  Sender: FDA-Public Use
  Company Number: CN-SA-SAC20230118000142

PATIENT
  Age: 64 Year
  Sex: Male
  Weight: 70 kg

DRUGS (11)
  1. LANTUS SOLOSTAR [Suspect]
     Active Substance: INSULIN GLARGINE
     Indication: Type 2 diabetes mellitus
     Dosage: 4-7 U QD IH
     Route: 065
     Dates: start: 20220608
  2. LANTUS SOLOSTAR [Suspect]
     Active Substance: INSULIN GLARGINE
     Dosage: 6 U, QD
     Route: 065
     Dates: start: 20220912
  3. HUMALOG [Suspect]
     Active Substance: INSULIN LISPRO
     Indication: Type 2 diabetes mellitus
     Dosage: 3-8 U IN THE MORNING, 4-6 U AT NOON, AND 4-5 U IN THE EVENING,
     Dates: start: 20220608, end: 20220930
  4. HUMALOG [Suspect]
     Active Substance: INSULIN LISPRO
     Dosage: 7 U, BEFORE BREAKFAST
  5. HUMALOG [Suspect]
     Active Substance: INSULIN LISPRO
     Dosage: 5 U/MORNING, 6 U/NOON, 5 U/NIGH
     Dates: start: 20220912
  6. NOVOLIN N [Concomitant]
     Active Substance: INSULIN HUMAN
     Dosage: 6 U
     Route: 058
     Dates: start: 20221001
  7. INSULIN ASPART [Concomitant]
     Active Substance: INSULIN ASPART
     Dosage: 8 (MORNING) 6U(NOON) 6 (EVENING)
     Route: 058
     Dates: start: 20221001
  8. ASPIRIN [Concomitant]
     Active Substance: ASPIRIN
  9. ATORVASTATIN CALCIUM [Concomitant]
     Active Substance: ATORVASTATIN CALCIUM
  10. LEVAMLODIPINE BESYLATE [Concomitant]
     Active Substance: LEVAMLODIPINE BESYLATE
  11. LIU WEI DI HUANG [Concomitant]

REACTIONS (3)
  - Brain stem infarction [Recovered/Resolved with Sequelae]
  - Hypoaesthesia [Unknown]
  - Hypoglycaemia [Unknown]

NARRATIVE: CASE EVENT DATE: 20220907
